FAERS Safety Report 24800436 (Version 1)
Quarter: 2025Q1

REPORT INFORMATION
  Report Type: Spontaneous
  Country: FR (occurrence: FR)
  Receive Date: 20250102
  Receipt Date: 20250102
  Transmission Date: 20250409
  Serious: Yes (Congenital Anomaly)
  Sender: LEO PHARM
  Company Number: None

PATIENT
  Age: 0 Year
  Sex: Male
  Weight: 1 kg

DRUGS (5)
  1. PROTOPIC [Suspect]
     Active Substance: TACROLIMUS
     Indication: Dermatomyositis
     Dosage: 1 TO 2 APPLICATIONS PER DAY
     Dates: start: 20231110, end: 20240212
  2. PROTOPIC [Suspect]
     Active Substance: TACROLIMUS
     Indication: Dermatomyositis
     Dosage: 1 TO 2 APPLICATIONS PER DAY
     Dates: start: 20231110, end: 20240212
  3. PROTOPIC [Suspect]
     Active Substance: TACROLIMUS
     Indication: Dermatomyositis
     Dosage: 1 TO 2 APPLICATIONS PER DAY
     Dates: start: 20231110, end: 20240212
  4. PREDNISONE [Suspect]
     Active Substance: PREDNISONE
     Indication: Dermatomyositis
     Dates: end: 20240212
  5. AZATHIOPRINE [Suspect]
     Active Substance: AZATHIOPRINE
     Indication: Dermatomyositis
     Dosage: 50 MG, FILM-COATED TABLET
     Dates: start: 20231110, end: 20240212

REACTIONS (5)
  - Foetal exposure during pregnancy [Recovered/Resolved]
  - Product use in unapproved indication [Unknown]
  - Foetal exposure during pregnancy [Recovered/Resolved]
  - Low birth weight baby [Unknown]
  - Premature baby [Recovered/Resolved]

NARRATIVE: CASE EVENT DATE: 20231110
